FAERS Safety Report 9986195 (Version 1)
Quarter: 2014Q1

REPORT INFORMATION
  Report Type: Report from Study
  Country: FR (occurrence: FR)
  Receive Date: 20140307
  Receipt Date: 20140307
  Transmission Date: 20141002
  Serious: Yes (Other)
  Sender: FDA-Public Use
  Company Number: FR-ABBVIE-14P-056-1206690-00

PATIENT
  Age: 65 Year
  Sex: Male
  Weight: 97 kg

DRUGS (5)
  1. NORVIR [Suspect]
     Indication: HIV INFECTION
     Route: 048
     Dates: start: 20131113, end: 20131130
  2. TRUVADA [Concomitant]
     Indication: HIV INFECTION
     Route: 065
     Dates: start: 20131113, end: 20131130
  3. PREZISTA [Concomitant]
     Indication: HIV INFECTION
     Dates: start: 20131113, end: 20131130
  4. MARAVIROC [Concomitant]
     Indication: HIV INFECTION
     Route: 065
     Dates: start: 20131113, end: 20131130
  5. BACTRIM FORTE (SULFAMETHOXAZOLE, TRIMETHOPRIM) [Concomitant]
     Indication: HIV INFECTION
     Route: 065
     Dates: start: 20131113, end: 20131130

REACTIONS (4)
  - Hyperthermia [Unknown]
  - Chills [Unknown]
  - Erythema [Unknown]
  - Face oedema [Unknown]
